FAERS Safety Report 25003550 (Version 1)
Quarter: 2025Q1

REPORT INFORMATION
  Report Type: Spontaneous
  Country: US (occurrence: None)
  Receive Date: 20250221
  Receipt Date: 20250221
  Transmission Date: 20250408
  Serious: Yes (Other)
  Sender: FDA-CTU
  Company Number: None

PATIENT
  Age: 28 Year
  Sex: Female
  Weight: 76.5 kg

DRUGS (13)
  1. GAMUNEX-C [Suspect]
     Active Substance: HUMAN IMMUNOGLOBULIN G
     Indication: Autoimmune neuropathy
     Route: 042
     Dates: start: 20250206, end: 20250207
  2. GAMUNEX-C [Suspect]
     Active Substance: HUMAN IMMUNOGLOBULIN G
     Indication: Impaired gastric emptying
  3. BENLYSTA [Concomitant]
     Active Substance: BELIMUMAB
  4. HYDROXYCHLOROQUINE [Concomitant]
     Active Substance: HYDROXYCHLOROQUINE
  5. IMURAN [Concomitant]
     Active Substance: AZATHIOPRINE
  6. Pyridostigimide br [Concomitant]
  7. MINOXIDIL [Concomitant]
     Active Substance: MINOXIDIL
  8. Junel e [Concomitant]
  9. ZOFRAN [Concomitant]
     Active Substance: ONDANSETRON HYDROCHLORIDE
  10. PREDNISONE [Suspect]
     Active Substance: PREDNISONE
  11. ALLEGRA [Concomitant]
     Active Substance: FEXOFENADINE HYDROCHLORIDE
  12. Olly prebiotics [Concomitant]
  13. VITAMINS [Concomitant]
     Active Substance: VITAMINS

REACTIONS (1)
  - Infusion related hypersensitivity reaction [None]

NARRATIVE: CASE EVENT DATE: 20250217
